FAERS Safety Report 12647929 (Version 1)
Quarter: 2016Q3

REPORT INFORMATION
  Report Type: Spontaneous
  Country: CN (occurrence: CN)
  Receive Date: 20160812
  Receipt Date: 20160812
  Transmission Date: 20161109
  Serious: Yes (Other)
  Sender: FDA-Public Use
  Company Number: CN-BAYER-2016-150228

PATIENT
  Age: 52 Year
  Sex: Female
  Weight: 45 kg

DRUGS (2)
  1. AVELOX [Suspect]
     Active Substance: MOXIFLOXACIN HYDROCHLORIDE
     Indication: LUNG INFECTION
     Dosage: 0.4 G, QD
     Route: 041
     Dates: start: 20160407, end: 20160410
  2. SULPERAZONE [Concomitant]
     Active Substance: CEFOPERAZONE SODIUM\SULBACTAM SODIUM
     Indication: LUNG INFECTION
     Dosage: 3 G, BID
     Route: 041
     Dates: start: 20160404, end: 20160414

REACTIONS (7)
  - Dysphoria [Recovering/Resolving]
  - Dyspnoea [Recovering/Resolving]
  - Pyrexia [Recovering/Resolving]
  - Tremor [Recovering/Resolving]
  - Mental disorder [Recovering/Resolving]
  - Language disorder [Recovering/Resolving]
  - Cough [Recovering/Resolving]

NARRATIVE: CASE EVENT DATE: 20160410
